FAERS Safety Report 8161208-5 (Version None)
Quarter: 2012Q1

REPORT INFORMATION
  Report Type: 
  Country: None (occurrence: None)
  Receive Date: 20120103
  Receipt Date: 20110915
  Transmission Date: 20120608
  Serious: No
  Sender: FDA-Public Use
  Company Number: AE-2011-001556

PATIENT
  Sex: Female

DRUGS (3)
  1. PEGASYS [Concomitant]
  2. INCIVEK [Suspect]
  3. RIBAVIRIN [Concomitant]

REACTIONS (3)
  - ANAL FISSURE [None]
  - ANORECTAL DISORDER [None]
  - DIARRHOEA [None]
